FAERS Safety Report 7113479-1 (Version None)
Quarter: 2010Q4

REPORT INFORMATION
  Report Type: 
  Country: None (occurrence: None)
  Receive Date: 20101119
  Receipt Date: 20101110
  Transmission Date: 20110411
  Serious: Yes (Other)
  Sender: FDA-Public Use
  Company Number: GB-JNJCH-2010024556

PATIENT
  Sex: Female

DRUGS (1)
  1. CALPOL SUGAR FREE INFANT SUSPENSION [Suspect]
     Indication: VIRAL INFECTION
     Dosage: TEXT:UNKNOWN
     Route: 048
     Dates: start: 20101001, end: 20101025

REACTIONS (4)
  - ERYTHEMA MULTIFORME [None]
  - OFF LABEL USE [None]
  - PYREXIA [None]
  - RASH [None]
